FAERS Safety Report 5425602-5 (Version None)
Quarter: 2007Q3

REPORT INFORMATION
  Report Type: 
  Country: None (occurrence: None)
  Receive Date: 20070824
  Receipt Date: 20070814
  Transmission Date: 20080115
  Serious: Yes (Hospitalization)
  Sender: FDA-Public Use
  Company Number: US-PFIZER INC-2007067153

PATIENT
  Sex: Female
  Weight: 61.2 kg

DRUGS (5)
  1. SOLU-MEDROL [Suspect]
  2. REBIF [Suspect]
     Indication: MULTIPLE SCLEROSIS
     Route: 058
  3. REBIF [Suspect]
     Route: 058
  4. WELLBUTRIN [Concomitant]
     Route: 048
  5. LITHIUM CARBONATE [Concomitant]
     Route: 048

REACTIONS (2)
  - MULTIPLE SCLEROSIS [None]
  - URINARY TRACT INFECTION [None]
